FAERS Safety Report 7693142-9 (Version None)
Quarter: 2011Q3

REPORT INFORMATION
  Report Type: 
  Country: None (occurrence: None)
  Receive Date: 20110819
  Receipt Date: 20110816
  Transmission Date: 20111222
  Serious: Yes (Other)
  Sender: FDA-Public Use
  Company Number: US-PFIZER INC-2011188256

PATIENT
  Sex: Male

DRUGS (1)
  1. LIPITOR [Suspect]
     Dosage: UNK
     Dates: start: 20110801

REACTIONS (6)
  - MOVEMENT DISORDER [None]
  - MYALGIA [None]
  - GAIT DISTURBANCE [None]
  - MENTAL IMPAIRMENT [None]
  - ARTHRALGIA [None]
  - SUICIDAL IDEATION [None]
